FAERS Safety Report 5320349-8 (Version None)
Quarter: 2007Q1

REPORT INFORMATION
  Report Type: 
  Country: None (occurrence: None)
  Receive Date: 20070208
  Receipt Date: 20060613
  Transmission Date: 20070707
  Serious: Yes (Hospitalization)
  Sender: FDA-Public Use
  Company Number: 451947

PATIENT
  Age: 56 Year
  Sex: Male
  Weight: 106.6 kg

DRUGS (1)
  1. TORADOL [Suspect]
     Indication: BACK PAIN
     Dosage: ORAL
     Route: 048
     Dates: start: 20050815

REACTIONS (1)
  - GASTRIC ULCER [None]
